FAERS Safety Report 25581027 (Version 3)
Quarter: 2025Q4

REPORT INFORMATION
  Report Type: Spontaneous
  Country: US (occurrence: US)
  Receive Date: 20250718
  Receipt Date: 20251118
  Transmission Date: 20260117
  Serious: Yes (Other)
  Sender: NOVO NORDISK
  Company Number: US-NOVOPROD-1356218

PATIENT
  Age: 74 Year
  Sex: Female
  Weight: 74.83 kg

DRUGS (5)
  1. WEGOVY [Suspect]
     Active Substance: SEMAGLUTIDE
     Indication: Obesity
     Dosage: UNK
     Route: 058
     Dates: start: 202404
  2. WEGOVY [Suspect]
     Active Substance: SEMAGLUTIDE
     Indication: Obesity
     Dosage: 1.7 MG, QW(INCREASED DOSE)
     Dates: start: 20241006
  3. WEGOVY [Suspect]
     Active Substance: SEMAGLUTIDE
     Indication: Obesity
     Dosage: 2.4 MG, QW
     Dates: start: 20241205, end: 20241223
  4. WEGOVY [Suspect]
     Active Substance: SEMAGLUTIDE
     Indication: Obesity
     Dosage: 0.25 MG, QW
     Dates: start: 20250807, end: 20250924
  5. WEGOVY [Suspect]
     Active Substance: SEMAGLUTIDE
     Indication: Obesity
     Dosage: 1 MG, QW
     Dates: end: 20251001

REACTIONS (5)
  - Idiopathic orbital inflammation [Not Recovered/Not Resolved]
  - Injection site bruising [Recovering/Resolving]
  - Injection site discharge [Unknown]
  - Allodynia [Recovered/Resolved]
  - Allodynia [Recovered/Resolved]

NARRATIVE: CASE EVENT DATE: 20250101
